FAERS Safety Report 26051462 (Version 1)
Quarter: 2025Q4

REPORT INFORMATION
  Report Type: Spontaneous
  Country: US (occurrence: US)
  Receive Date: 20251117
  Receipt Date: 20251117
  Transmission Date: 20260117
  Serious: No
  Sender: ABBVIE
  Company Number: US-ABBVIE-6549801

PATIENT

DRUGS (2)
  1. VRAYLAR [Suspect]
     Active Substance: CARIPRAZINE
     Indication: Schizoaffective disorder
     Route: 048
  2. VRAYLAR [Suspect]
     Active Substance: CARIPRAZINE
     Indication: Schizoaffective disorder
     Dosage: DOSE REDUCED
     Route: 048

REACTIONS (3)
  - Off label use [Unknown]
  - Hallucination, auditory [Unknown]
  - Anxiety [Not Recovered/Not Resolved]
